FAERS Safety Report 6114749-6 (Version None)
Quarter: 2009Q1

REPORT INFORMATION
  Report Type: 
  Country: None (occurrence: None)
  Receive Date: 20090313
  Receipt Date: 20090310
  Transmission Date: 20090719
  Serious: Yes (Death)
  Sender: FDA-Public Use
  Company Number: PHBS2009AU00662

PATIENT
  Age: 45 Year
  Sex: Male

DRUGS (5)
  1. IMATINIB MESYLATE [Suspect]
     Indication: CHRONIC MYELOID LEUKAEMIA
     Dosage: 400 MG DAILY
  2. HYDROXYUREA [Concomitant]
     Dosage: 1 G, TID
  3. ALLOPURINOL [Concomitant]
     Dosage: 600 MG
  4. LEUKOPHERESIS [Concomitant]
  5. FLUID/ELECTROLYTE REPLACEMENT THERAPY [Concomitant]

REACTIONS (9)
  - BLOOD LACTATE DEHYDROGENASE INCREASED [None]
  - BRAIN INJURY [None]
  - CARDIO-RESPIRATORY ARREST [None]
  - DYSPNOEA [None]
  - HYPERPHOSPHATAEMIA [None]
  - LUNG INFILTRATION [None]
  - PYREXIA [None]
  - RENAL FAILURE ACUTE [None]
  - TUMOUR LYSIS SYNDROME [None]
